FAERS Safety Report 23801581 (Version 2)
Quarter: 2024Q2

REPORT INFORMATION
  Report Type: Report from Study
  Country: UY (occurrence: UY)
  Receive Date: 20240430
  Receipt Date: 20240604
  Transmission Date: 20240716
  Serious: Yes (Hospitalization, Other)
  Sender: FDA-Public Use
  Company Number: UY-ABBVIE-5737196

PATIENT
  Sex: Female

DRUGS (2)
  1. RINVOQ [Suspect]
     Active Substance: UPADACITINIB
     Indication: Rheumatoid arthritis
     Dosage: FORM STRENGTH: 15 MILLIGRAM
     Route: 048
     Dates: start: 20210405
  2. ALENDRONIC ACID [Concomitant]
     Active Substance: ALENDRONIC ACID
     Indication: Osteoporosis
     Dosage: BEFORE RINVOQ
     Dates: end: 202403

REACTIONS (12)
  - Bone disorder [Unknown]
  - Removal of foreign body [Unknown]
  - Osteitis [Unknown]
  - Pain in jaw [Recovering/Resolving]
  - Rheumatoid arthritis [Not Recovered/Not Resolved]
  - Speech disorder [Recovering/Resolving]
  - Osteonecrosis [Recovered/Resolved]
  - Purulence [Recovered/Resolved]
  - Loose tooth [Unknown]
  - Infection [Recovering/Resolving]
  - Jaw fracture [Unknown]
  - Device intolerance [Not Recovered/Not Resolved]

NARRATIVE: CASE EVENT DATE: 20230101
